FAERS Safety Report 5724539-1 (Version None)
Quarter: 2008Q2

REPORT INFORMATION
  Report Type: 
  Country: None (occurrence: None)
  Receive Date: 20080501
  Receipt Date: 20080417
  Transmission Date: 20081010
  Serious: Yes (Hospitalization, Congenital Anomaly)
  Sender: FDA-Public Use
  Company Number: CH-BAYER-200718515GPV

PATIENT
  Sex: Female

DRUGS (1)
  1. YASMIN [Suspect]
     Route: 064
     Dates: end: 20070630

REACTIONS (2)
  - HYPERBILIRUBINAEMIA [None]
  - SINGLE UMBILICAL ARTERY [None]
